FAERS Safety Report 10132799 (Version 2)
Quarter: 2014Q2

REPORT INFORMATION
  Report Type: Spontaneous
  Country: US (occurrence: US)
  Receive Date: 20140428
  Receipt Date: 20140616
  Transmission Date: 20141212
  Serious: No
  Sender: FDA-Public Use
  Company Number: US-FRI-1000066815

PATIENT
  Age: 41 Year
  Sex: Female
  Weight: 103 kg

DRUGS (3)
  1. FETZIMA [Suspect]
     Indication: DEPRESSION
     Dosage: 20 MG
     Route: 048
     Dates: start: 20140304, end: 20140305
  2. FETZIMA [Suspect]
     Indication: DEPRESSION
     Dosage: 40 MG
     Route: 048
     Dates: start: 20140306, end: 20140420
  3. CELEXA [Suspect]
     Indication: DEPRESSION
     Dates: end: 2014

REACTIONS (1)
  - Depression [Recovered/Resolved]
